FAERS Safety Report 4367142-0 (Version None)
Quarter: 2004Q2

REPORT INFORMATION
  Report Type: 
  Country: None (occurrence: None)
  Receive Date: 20040528
  Receipt Date: 20040521
  Transmission Date: 20050107
  Serious: Yes (Hospitalization)
  Sender: FDA-Public Use
  Company Number: IT-GLAXOSMITHKLINE-B0333855A

PATIENT
  Age: 91 Year
  Sex: Female

DRUGS (2)
  1. AMOXICILLIN AND CLAVULANATE POTASSIUM [Suspect]
     Dosage: 2G PER DAY
     Route: 048
     Dates: start: 20040507, end: 20040510
  2. ACETAMINOPHEN [Concomitant]
     Dosage: 500MG PER DAY
     Route: 048
     Dates: start: 20040507, end: 20040510

REACTIONS (2)
  - ERYTHEMA [None]
  - OEDEMA [None]
